FAERS Safety Report 12173408 (Version 5)
Quarter: 2016Q2

REPORT INFORMATION
  Report Type: Report from Study
  Country: US (occurrence: US)
  Receive Date: 20160311
  Receipt Date: 20160617
  Transmission Date: 20160815
  Serious: Yes (Other)
  Sender: FDA-Public Use
  Company Number: US-SA-2016SA036647

PATIENT
  Age: 34 Year
  Sex: Male

DRUGS (1)
  1. LEMTRADA [Suspect]
     Active Substance: ALEMTUZUMAB
     Indication: MULTIPLE SCLEROSIS
     Route: 041
     Dates: start: 20160208, end: 20160212

REACTIONS (17)
  - Staphylococcal infection [Recovered/Resolved]
  - Malaise [Unknown]
  - Body temperature abnormal [Unknown]
  - Pain [Unknown]
  - Fatigue [Unknown]
  - Pharyngitis streptococcal [Recovered/Resolved]
  - Feeling abnormal [Unknown]
  - Gait disturbance [Unknown]
  - Malaise [Recovered/Resolved]
  - Discomfort [Unknown]
  - Weight decreased [Unknown]
  - Back pain [Not Recovered/Not Resolved]
  - Pain [Not Recovered/Not Resolved]
  - Epistaxis [Recovered/Resolved]
  - Pain in extremity [Not Recovered/Not Resolved]
  - Respiratory disorder [Unknown]
  - Dysgeusia [Recovered/Resolved]

NARRATIVE: CASE EVENT DATE: 201602
